FAERS Safety Report 9383508 (Version 1)
Quarter: 2013Q3

REPORT INFORMATION
  Report Type: Spontaneous
  Country: US (occurrence: US)
  Receive Date: 20130704
  Receipt Date: 20130704
  Transmission Date: 20140515
  Serious: No
  Sender: FDA-Public Use
  Company Number: US-009507513-1307USA000053

PATIENT
  Sex: Female

DRUGS (2)
  1. AZASITE [Suspect]
     Dosage: 1 DROP PER EYE TWICE DAILY
     Route: 047
     Dates: start: 20130620, end: 20130621
  2. AZASITE [Suspect]
     Dosage: 1 DROP PER EYE ONCE DAILY FOR THE N
     Route: 047
     Dates: start: 20130622

REACTIONS (4)
  - Drug dose omission [Unknown]
  - Liquid product physical issue [Unknown]
  - Product quality issue [Unknown]
  - No adverse event [Unknown]
